FAERS Safety Report 25431687 (Version 2)
Quarter: 2025Q4

REPORT INFORMATION
  Report Type: Other
  Country: CN (occurrence: CN)
  Receive Date: 20250613
  Receipt Date: 20251015
  Transmission Date: 20260117
  Serious: Yes (Hospitalization)
  Sender: ANI
  Company Number: CN-ANIPHARMA-023148

PATIENT
  Age: 64 Year
  Sex: Male

DRUGS (9)
  1. PYRIDOSTIGMINE [Suspect]
     Active Substance: PYRIDOSTIGMINE
     Indication: Myasthenia gravis
     Dates: start: 2017
  2. PREDNISONE [Concomitant]
     Active Substance: PREDNISONE
     Indication: Myasthenia gravis
     Dates: start: 2017
  3. immune-globulin [Concomitant]
     Indication: Myasthenia gravis
  4. TACROLIMUS [Concomitant]
     Active Substance: TACROLIMUS
     Indication: Myasthenia gravis
  5. TELITACICEPT [Concomitant]
     Active Substance: TELITACICEPT
     Indication: Myasthenia gravis
     Dates: start: 20230607
  6. PYRIDOSTIGMINE [Suspect]
     Active Substance: PYRIDOSTIGMINE
     Indication: Myasthenia gravis
     Route: 048
  7. PYRIDOSTIGMINE [Suspect]
     Active Substance: PYRIDOSTIGMINE
     Indication: Myasthenia gravis
  8. PREDNISONE [Concomitant]
     Active Substance: PREDNISONE
     Indication: Myasthenia gravis
  9. PREDNISONE [Concomitant]
     Active Substance: PREDNISONE
     Indication: Myasthenia gravis

REACTIONS (2)
  - Salivary hypersecretion [Recovered/Resolved]
  - Abdominal discomfort [Recovered/Resolved]
